FAERS Safety Report 21226815 (Version 1)
Quarter: 2022Q3

REPORT INFORMATION
  Report Type: Spontaneous
  Country: CN (occurrence: CN)
  Receive Date: 20220818
  Receipt Date: 20220818
  Transmission Date: 20221026
  Serious: Yes (Other)
  Sender: FDA-Public Use
  Company Number: None

PATIENT
  Age: 45 Year
  Sex: Female
  Weight: 57 kg

DRUGS (5)
  1. CYCLOPHOSPHAMIDE [Suspect]
     Active Substance: CYCLOPHOSPHAMIDE
     Indication: Breast cancer female
     Dosage: 0.95 G, QD, DILUTED WITH 0.9% SODIUM CHLORIDE 100 ML, 5TH CHEMOTHERAPY
     Route: 041
     Dates: start: 20220704, end: 20220705
  2. SODIUM CHLORIDE [Suspect]
     Active Substance: SODIUM CHLORIDE
     Indication: Medication dilution
     Dosage: 100 ML, QD, DILUTED IN CYCLOPHOSPHAMIDE 0.95 G, 5TH CHEMOTHERAPY
     Route: 041
     Dates: start: 20220704, end: 20220705
  3. DEXTROSE MONOHYDRATE [Suspect]
     Active Substance: DEXTROSE MONOHYDRATE
     Indication: Medication dilution
     Dosage: 250 ML, QD, DILUTED IN PIRARUBICIN 80 MG, 5TH CHEMOTHERAPY
     Route: 041
     Dates: start: 20220704, end: 20220705
  4. PIRARUBICIN [Suspect]
     Active Substance: PIRARUBICIN
     Indication: Breast cancer female
     Dosage: 80 MG, QD, DILUTED WITH 5% GLUCOSE 250ML, 5TH CHEMOTHERAPY
     Route: 041
     Dates: start: 20220704, end: 20220705
  5. EPIRUBICIN HYDROCHLORIDE [Suspect]
     Active Substance: EPIRUBICIN HYDROCHLORIDE
     Indication: Breast cancer female
     Dosage: 80 MG, QD, 5TH CHEMTHERAPY
     Route: 041
     Dates: start: 20220704, end: 20220705

REACTIONS (1)
  - Myelosuppression [Unknown]

NARRATIVE: CASE EVENT DATE: 20220724
